FAERS Safety Report 24291249 (Version 1)
Quarter: 2024Q3

REPORT INFORMATION
  Report Type: Spontaneous
  Country: US (occurrence: None)
  Receive Date: 20240906
  Receipt Date: 20240906
  Transmission Date: 20241017
  Serious: No
  Sender: DOMPE FARMACEUTICI
  Company Number: US-FARMAPROD-202308-2355

PATIENT
  Sex: Male
  Weight: 63.5 kg

DRUGS (19)
  1. OXERVATE [Suspect]
     Active Substance: CENEGERMIN-BKBJ
     Indication: Neurotrophic keratopathy
     Route: 047
     Dates: start: 20230802, end: 20231003
  2. OXERVATE [Suspect]
     Active Substance: CENEGERMIN-BKBJ
     Route: 047
     Dates: start: 20231018
  3. MELATONIN [Concomitant]
     Active Substance: MELATONIN
  4. RAMELTEON [Concomitant]
     Active Substance: RAMELTEON
  5. GEODON [Concomitant]
     Active Substance: ZIPRASIDONE HYDROCHLORIDE\ZIPRASIDONE MESYLATE
  6. LOSARTAN POTASSIUM [Concomitant]
     Active Substance: LOSARTAN POTASSIUM
  7. DOCUSATE SODIUM [Concomitant]
     Active Substance: DOCUSATE SODIUM
  8. RESTASIS [Concomitant]
     Active Substance: CYCLOSPORINE
  9. ASPIRIN [Concomitant]
     Active Substance: ASPIRIN
  10. ZIPRASIDONE HYDROCHLORIDE [Concomitant]
     Active Substance: ZIPRASIDONE HYDROCHLORIDE
  11. CYCLOSPORINE [Concomitant]
     Active Substance: CYCLOSPORINE
  12. ROSUVASTATIN CALCIUM [Concomitant]
     Active Substance: ROSUVASTATIN CALCIUM
  13. FAMOTIDINE [Concomitant]
     Active Substance: FAMOTIDINE
  14. EPIPEN [Concomitant]
     Active Substance: EPINEPHRINE
     Dosage: 0.3 MG / 0.3 AUTO INJECTOR
  15. DICLOFENAC SODIUM [Concomitant]
     Active Substance: DICLOFENAC\DICLOFENAC SODIUM
  16. LIDOCAINE [Concomitant]
     Active Substance: LIDOCAINE
     Dosage: ADHESIVE PATCH
  17. ESCITALOPRAM OXALATE [Concomitant]
     Active Substance: ESCITALOPRAM OXALATE
  18. FLUTICASONE PROPIONATE [Concomitant]
     Active Substance: FLUTICASONE PROPIONATE
     Dosage: SUSPENSION
  19. ZOLPIDEM TARTRATE [Concomitant]
     Active Substance: ZOLPIDEM TARTRATE
     Dosage: MULTIPHASE

REACTIONS (3)
  - Ear pain [Not Recovered/Not Resolved]
  - Eye irritation [Recovered/Resolved]
  - Eye pain [Unknown]
